FAERS Safety Report 14937098 (Version 1)
Quarter: 2018Q2

REPORT INFORMATION
  Report Type: Spontaneous
  Country: US (occurrence: US)
  Receive Date: 20180525
  Receipt Date: 20180525
  Transmission Date: 20180711
  Serious: Yes (Death)
  Sender: FDA-Public Use
  Company Number: US-BEH-2018090944

PATIENT
  Age: 75 Year
  Sex: Female

DRUGS (23)
  1. HIZENTRA [Suspect]
     Active Substance: HUMAN IMMUNOGLOBULIN G
     Dosage: 10 G, QW
     Route: 058
     Dates: start: 20141218, end: 20180521
  2. ZYFLO [Concomitant]
     Active Substance: ZILEUTON
  3. ZOCOR [Concomitant]
     Active Substance: SIMVASTATIN
  4. PREDNISONE. [Concomitant]
     Active Substance: PREDNISONE
  5. NEURONTIN [Concomitant]
     Active Substance: GABAPENTIN
  6. ALBUTEROL                          /00139501/ [Concomitant]
     Active Substance: ALBUTEROL
  7. FLUTICASONE. [Concomitant]
     Active Substance: FLUTICASONE
  8. COMBIVENT [Concomitant]
     Active Substance: ALBUTEROL SULFATE\IPRATROPIUM BROMIDE
  9. CYCLOBENZAPRINE. [Concomitant]
     Active Substance: CYCLOBENZAPRINE
  10. TYLENOL [Concomitant]
     Active Substance: ACETAMINOPHEN
  11. OXYCODONE AND ACETAMINOPHEN [Concomitant]
     Active Substance: ACETAMINOPHEN\OXYCODONE HYDROCHLORIDE
  12. HIZENTRA [Suspect]
     Active Substance: HUMAN IMMUNOGLOBULIN G
     Indication: IMMUNODEFICIENCY COMMON VARIABLE
     Dosage: UNK
     Route: 058
  13. NAFTIN [Concomitant]
     Active Substance: NAFTIFINE HYDROCHLORIDE
  14. PROTONIX [Concomitant]
     Active Substance: PANTOPRAZOLE SODIUM
  15. FLONASE [Concomitant]
     Active Substance: FLUTICASONE PROPIONATE
  16. ATROVENT [Concomitant]
     Active Substance: IPRATROPIUM BROMIDE
  17. MUCINEX [Concomitant]
     Active Substance: GUAIFENESIN
  18. GUAIFENESIN AND CODEINE PHOSPHATE [Concomitant]
     Active Substance: CODEINE PHOSPHATE\GUAIFENESIN
  19. SYMBICORT [Concomitant]
     Active Substance: BUDESONIDE\FORMOTEROL FUMARATE DIHYDRATE
  20. ATIVAN [Concomitant]
     Active Substance: LORAZEPAM
  21. IPRATROPIUM                        /00391402/ [Concomitant]
  22. CELEXA [Concomitant]
     Active Substance: CITALOPRAM HYDROBROMIDE
  23. AZELASTINE. [Concomitant]
     Active Substance: AZELASTINE HYDROCHLORIDE

REACTIONS (1)
  - Death [Fatal]

NARRATIVE: CASE EVENT DATE: 20180521
